FAERS Safety Report 6546809-X (Version None)
Quarter: 2010Q1

REPORT INFORMATION
  Report Type: 
  Country: None (occurrence: None)
  Receive Date: 20100119
  Receipt Date: 20100104
  Transmission Date: 20100710
  Serious: Yes (Hospitalization)
  Sender: FDA-Public Use
  Company Number: 2009AC000015

PATIENT
  Age: 57 Year
  Sex: Male

DRUGS (6)
  1. DIGOXIN [Suspect]
     Dosage: PO
     Route: 048
     Dates: start: 20060101
  2. COUMADIN [Concomitant]
  3. CRESTOR [Concomitant]
  4. LOVENOX [Concomitant]
  5. COUMADIN [Concomitant]
  6. BETAPACE [Concomitant]

REACTIONS (3)
  - ATRIAL FIBRILLATION [None]
  - ECONOMIC PROBLEM [None]
  - MULTIPLE INJURIES [None]
